FAERS Safety Report 14306835 (Version 7)
Quarter: 2018Q2

REPORT INFORMATION
  Report Type: Report from Study
  Country: GB (occurrence: GB)
  Receive Date: 20171220
  Receipt Date: 20180526
  Transmission Date: 20180711
  Serious: Yes (Hospitalization)
  Sender: FDA-Public Use
  Company Number: GB-CONCORDIA PHARMACEUTICALS INC.-E2B_00008893

PATIENT
  Age: 73 Year
  Sex: Male
  Weight: 61 kg

DRUGS (3)
  1. ABIRATERONE [Suspect]
     Active Substance: ABIRATERONE
     Indication: PROSTATE CANCER METASTATIC
     Route: 048
     Dates: start: 20161207, end: 20170321
  2. PREDNISOLONE. [Suspect]
     Active Substance: PREDNISOLONE
     Indication: PROSTATE CANCER METASTATIC
     Dosage: DOSAGE FORM: UNSPECIFIED
     Route: 048
     Dates: start: 20161207
  3. ABIRATERONE [Suspect]
     Active Substance: ABIRATERONE
     Indication: PROSTATE CANCER METASTATIC

REACTIONS (4)
  - Nausea [Recovered/Resolved with Sequelae]
  - Dehydration [Recovered/Resolved with Sequelae]
  - Vomiting [Recovered/Resolved]
  - Urosepsis [Recovered/Resolved with Sequelae]

NARRATIVE: CASE EVENT DATE: 20161207
